FAERS Safety Report 4650550-8 (Version None)
Quarter: 2005Q2

REPORT INFORMATION
  Report Type: 
  Country: None (occurrence: None)
  Receive Date: 20050429
  Receipt Date: 20050419
  Transmission Date: 20051028
  Serious: Yes (Life-Threatening, Hospitalization)
  Sender: FDA-Public Use
  Company Number: 0104-2211

PATIENT
  Age: 63 Year
  Sex: Female

DRUGS (2)
  1. ADVICOR [Suspect]
     Dosage: 2 TABLET(S) QHS PO
     Route: 048
  2. LOTENSIN [Concomitant]

REACTIONS (3)
  - CONTUSION [None]
  - EXTRADURAL HAEMATOMA [None]
  - PLATELET COUNT DECREASED [None]
